FAERS Safety Report 8583456-2 (Version None)
Quarter: 2012Q3

REPORT INFORMATION
  Report Type: 
  Country: None (occurrence: None)
  Receive Date: 20120809
  Receipt Date: 20120730
  Transmission Date: 20120928
  Serious: Yes (Hospitalization)
  Sender: FDA-Public Use
  Company Number: DE-ROCHE-1093828

PATIENT
  Age: 66 Year
  Sex: Female
  Weight: 54 kg

DRUGS (34)
  1. BISOPROLOL FUMARATE [Concomitant]
     Indication: HYPERTENSION
     Route: 048
  2. POTASSIUM CHLORIDE [Concomitant]
     Indication: HYPOKALAEMIA
     Route: 042
     Dates: start: 20120717, end: 20120717
  3. DEXAMETHASONE [Concomitant]
     Route: 048
     Dates: start: 20120325
  4. OXAZEPAM [Concomitant]
     Indication: DEPRESSION
     Route: 048
  5. NOVALGIN [Concomitant]
     Indication: ABDOMINAL PAIN
     Dosage: 20 DROPS
     Route: 048
     Dates: start: 20120328, end: 20120702
  6. ZOFRAN [Concomitant]
     Route: 042
     Dates: start: 20120326
  7. ZOFRAN [Concomitant]
     Route: 048
     Dates: start: 20120327
  8. LASIX [Concomitant]
     Route: 042
     Dates: start: 20120717, end: 20120717
  9. TAVOR (GERMANY) [Concomitant]
     Indication: DEPRESSION
     Route: 048
     Dates: end: 20120702
  10. OXYGEN [Concomitant]
     Indication: DYSPNOEA
     Dosage: ROUTE: INHALED
     Dates: start: 20120316
  11. TORSEMIDE [Concomitant]
     Route: 048
     Dates: start: 20120704, end: 20120718
  12. PAROXETINE [Concomitant]
     Indication: DEPRESSION
     Route: 048
  13. DEXAMETHASONE [Concomitant]
     Indication: NAUSEA
     Route: 048
     Dates: start: 20120316, end: 20120723
  14. DEXAMETHASONE [Concomitant]
     Route: 048
     Dates: start: 20120325
  15. RANITIDINE HCL [Concomitant]
     Dosage: 1 AMPULE
     Route: 042
     Dates: start: 20120326
  16. XIMOVAN [Concomitant]
     Indication: PROPHYLAXIS
     Route: 048
     Dates: start: 20120710, end: 20120711
  17. KALIUM [Concomitant]
     Route: 048
     Dates: start: 20120716, end: 20120723
  18. LASIX [Concomitant]
     Indication: PERICARDIAL EFFUSION
     Route: 042
     Dates: start: 20120716, end: 20120716
  19. PACLITAXEL [Suspect]
     Indication: NON-SMALL CELL LUNG CANCER RECURRENT
     Dosage: DATE OF MOST RECENT DOSE-11/JUL/2012.
     Route: 042
     Dates: start: 20120326
  20. RAMIPRIL [Concomitant]
     Indication: HYPERTENSION
     Route: 048
     Dates: end: 20120702
  21. OPTIPECT [Concomitant]
     Indication: COUGH
     Dosage: 20 DROPS
     Route: 048
     Dates: start: 20120316, end: 20120702
  22. SPIRONOLACTONE [Concomitant]
     Indication: PERICARDIAL EFFUSION
     Route: 048
     Dates: start: 20120530, end: 20120702
  23. TORSEMIDE [Concomitant]
     Dates: start: 20120719, end: 20120723
  24. RINGER SOLUTION [Concomitant]
     Route: 042
     Dates: start: 20120717, end: 20120717
  25. AVASTIN [Suspect]
     Indication: NON-SMALL CELL LUNG CANCER RECURRENT
     Dosage: DATE OF MOST RECENT DOSE-11/JUL/2012.
     Route: 042
     Dates: start: 20120326
  26. LEVOTHYROXINE SODIUM [Concomitant]
     Indication: HYPERTHYROIDISM
     Route: 048
  27. TORSEMIDE [Concomitant]
     Indication: HYPERTENSION
     Route: 048
     Dates: start: 20120530, end: 20120703
  28. CARBOPLATIN [Suspect]
     Indication: NON-SMALL CELL LUNG CANCER RECURRENT
     Dosage: DATE OF MOST RECENT DOSE-11/JUL/2012.
     Route: 042
     Dates: start: 20120326
  29. PANTOPRAZOLE [Concomitant]
     Indication: GASTROOESOPHAGEAL REFLUX DISEASE
     Route: 048
  30. CLEMASTINE FUMARATE [Concomitant]
     Dosage: 1 AMPULE
     Route: 042
     Dates: start: 20120326
  31. PERENTEROL FORTE [Concomitant]
     Indication: DIARRHOEA
     Route: 048
     Dates: start: 20120604, end: 20120702
  32. KALIUM [Concomitant]
     Indication: HYPOKALAEMIA
     Route: 048
     Dates: start: 20120703, end: 20120715
  33. METOCLOPRAMIDE [Concomitant]
     Indication: NAUSEA
     Dosage: 20 DROPS
     Route: 048
     Dates: start: 20120716, end: 20120716
  34. PLACEBO [Suspect]
     Indication: NON-SMALL CELL LUNG CANCER RECURRENT

REACTIONS (2)
  - OEDEMA DUE TO CARDIAC DISEASE [None]
  - HYPERTENSION [None]
